FAERS Safety Report 9366174 (Version 1)
Quarter: 2013Q2

REPORT INFORMATION
  Report Type: Report from Study
  Country: US (occurrence: US)
  Receive Date: 20130625
  Receipt Date: 20130625
  Transmission Date: 20140414
  Serious: Yes (Death)
  Sender: FDA-Public Use
  Company Number: US-ASTELLAS-2013US006529

PATIENT
  Age: 52 Year
  Sex: Male

DRUGS (2)
  1. ERLOTINIB TABLET [Suspect]
     Indication: BRONCHIAL CARCINOMA
     Dosage: 100 MG, UID/QD
     Route: 048
  2. ERLOTINIB TABLET [Suspect]
     Indication: ADRENAL GLAND CANCER

REACTIONS (3)
  - Off label use [Unknown]
  - Incorrect dose administered [Unknown]
  - Death [Fatal]
